FAERS Safety Report 8238578-2 (Version None)
Quarter: 2012Q1

REPORT INFORMATION
  Report Type: 
  Country: None (occurrence: None)
  Receive Date: 20120327
  Receipt Date: 20120322
  Transmission Date: 20120608
  Serious: Yes (Life-Threatening, Hospitalization, Disabling, Other)
  Sender: FDA-Public Use
  Company Number: US-CELGENEUS-163-21880-12030572

PATIENT
  Sex: Female

DRUGS (10)
  1. INSULIN [Concomitant]
     Route: 065
  2. MIRALAX [Concomitant]
     Dosage: 17 GRAM
     Route: 065
     Dates: start: 20110101
  3. COUMADIN [Concomitant]
     Route: 065
  4. CARDIZEM [Concomitant]
     Route: 065
  5. REVLIMID [Suspect]
     Indication: MULTIPLE MYELOMA
     Dosage: 25 MILLIGRAM
     Route: 048
     Dates: start: 20111201
  6. FAMOTIDINE [Concomitant]
     Dosage: 20 MILLIGRAM
     Route: 065
  7. GABAPENTIN [Concomitant]
     Dosage: 100 MILLIGRAM
     Route: 048
  8. DIOVAN HCT [Concomitant]
     Indication: HYPERTENSION
     Dosage: 160/25
     Route: 065
  9. ASPIRIN [Concomitant]
     Dosage: 325 MILLIGRAM
     Route: 065
     Dates: start: 20100329
  10. COREG [Concomitant]
     Route: 065

REACTIONS (3)
  - CEREBROVASCULAR ACCIDENT [None]
  - ATRIAL FLUTTER [None]
  - URINARY TRACT INFECTION [None]
